FAERS Safety Report 5431545-3 (Version None)
Quarter: 2007Q3

REPORT INFORMATION
  Report Type: 
  Country: None (occurrence: None)
  Receive Date: 20070830
  Receipt Date: 20070821
  Transmission Date: 20080115
  Serious: Yes (Other)
  Sender: FDA-Public Use
  Company Number: AU-ASTRAZENECA-2007AP05292

PATIENT
  Age: 8157 Day
  Sex: Female
  Weight: 51 kg

DRUGS (1)
  1. ENTOCORT EC [Suspect]
     Route: 048
     Dates: start: 20060208, end: 20060209

REACTIONS (4)
  - DYSPNOEA [None]
  - HYPOAESTHESIA FACIAL [None]
  - OBSTRUCTIVE AIRWAYS DISORDER [None]
  - PRURITUS GENERALISED [None]
